FAERS Safety Report 6509475-5 (Version None)
Quarter: 2009Q4

REPORT INFORMATION
  Report Type: 
  Country: None (occurrence: None)
  Receive Date: 20091222
  Receipt Date: 20091209
  Transmission Date: 20100525
  Serious: Yes (Other)
  Sender: FDA-Public Use
  Company Number: DE-AMGEN-UK361780

PATIENT
  Sex: Female
  Weight: 78 kg

DRUGS (12)
  1. ARANESP [Suspect]
     Indication: ANAEMIA
     Route: 042
     Dates: start: 20090805
  2. MOXONIDINE [Concomitant]
     Route: 065
  3. PANTOPRAZOLE [Concomitant]
     Route: 065
  4. BELOC ZOK [Concomitant]
     Route: 065
  5. XIPAMIDE [Concomitant]
     Route: 065
  6. RAMIPRIL [Concomitant]
     Route: 065
  7. DIOVAN [Concomitant]
     Route: 065
  8. FOLSAN [Concomitant]
     Route: 065
  9. FERRLECIT [Concomitant]
     Route: 065
  10. EBRANTIL [Concomitant]
  11. DREISAVIT [Concomitant]
  12. MINOXIDIL [Concomitant]

REACTIONS (3)
  - NO THERAPEUTIC RESPONSE [None]
  - SPLENOMEGALY [None]
  - THROMBOCYTOPENIA [None]
